FAERS Safety Report 19560296 (Version 2)
Quarter: 2021Q3

REPORT INFORMATION
  Report Type: Spontaneous
  Country: FR (occurrence: FR)
  Receive Date: 20210716
  Receipt Date: 20210812
  Transmission Date: 20211014
  Serious: Yes (Hospitalization)
  Sender: FDA-Public Use
  Company Number: FR-TEVA-2021-FR-1932187

PATIENT
  Age: 44 Year
  Sex: Female
  Weight: 48 kg

DRUGS (6)
  1. METHOTREXATE. [Suspect]
     Active Substance: METHOTREXATE
     Indication: B-CELL LYMPHOMA
     Dosage: UNKNOWN DOSE:UNIT DOSE:15MILLIGRAM
     Route: 037
     Dates: start: 20210118, end: 20210322
  2. ONCOVIN [Suspect]
     Active Substance: VINCRISTINE SULFATE
     Indication: B-CELL LYMPHOMA
     Dosage: 2MILLIGRAM
     Route: 042
     Dates: start: 20210118, end: 20210322
  3. DOXORUBICINE ACCORD [Suspect]
     Active Substance: DOXORUBICIN
     Indication: B-CELL LYMPHOMA
     Dosage: 82MILLIGRAM
     Route: 041
     Dates: start: 20210118, end: 20210322
  4. CYTARABINE SANDOZ [Suspect]
     Active Substance: CYTARABINE
     Indication: B-CELL LYMPHOMA
     Dosage: UNKNOWN DOSE
     Route: 037
     Dates: start: 20210118, end: 20210322
  5. ENDOXAN [Suspect]
     Active Substance: CYCLOPHOSPHAMIDE
     Indication: B-CELL LYMPHOMA
     Dosage: 1140MILLIGRAM
     Route: 041
     Dates: start: 20210118, end: 20210322
  6. METHYLPREDNISOLONE MYLAN [Suspect]
     Active Substance: METHYLPREDNISOLONE
     Indication: B-CELL LYMPHOMA
     Dosage: UNKNOWN DOSE:UNIT DOSE:15MILLIGRAM
     Route: 037
     Dates: start: 20210118, end: 20210322

REACTIONS (2)
  - Aplasia [Recovering/Resolving]
  - Mucosal inflammation [Recovering/Resolving]

NARRATIVE: CASE EVENT DATE: 20210201
